FAERS Safety Report 4333825-1 (Version None)
Quarter: 2004Q2

REPORT INFORMATION
  Report Type: 
  Country: None (occurrence: None)
  Receive Date: 20040402
  Receipt Date: 20040322
  Transmission Date: 20050107
  Serious: Yes (Hospitalization)
  Sender: FDA-Public Use
  Company Number: 2004AP00774

PATIENT
  Age: 73 Year
  Sex: Female

DRUGS (13)
  1. IRESSA [Suspect]
     Indication: ADENOCARCINOMA
     Dosage: 250 GM DAILY PO
     Route: 048
     Dates: start: 20031113, end: 20031119
  2. IRESSA [Suspect]
     Indication: NON-SMALL CELL LUNG CANCER
     Dosage: 250 GM DAILY PO
     Route: 048
     Dates: start: 20031113, end: 20031119
  3. TAXOTERE [Concomitant]
  4. RADIOTHERAPY [Concomitant]
  5. MS CONTIN [Concomitant]
  6. RENIVACE [Concomitant]
  7. SELBEX [Concomitant]
  8. CODEINE PHOSPHATE [Concomitant]
  9. LENDORM [Concomitant]
  10. LOXONIN [Concomitant]
  11. TAGAMET [Concomitant]
  12. NAUZELIN [Concomitant]
  13. MEXITIL [Concomitant]

REACTIONS (5)
  - DEHYDRATION [None]
  - DEPRESSED LEVEL OF CONSCIOUSNESS [None]
  - DIARRHOEA [None]
  - PNEUMONIA ASPIRATION [None]
  - RENAL FAILURE [None]
